FAERS Safety Report 23062078 (Version 1)
Quarter: 2023Q4

REPORT INFORMATION
  Report Type: Spontaneous
  Country: US (occurrence: US)
  Receive Date: 20231013
  Receipt Date: 20231013
  Transmission Date: 20240109
  Serious: No
  Sender: FDA-Public Use
  Company Number: US-UROGEN PHARMA LTD.-2023-UGN-000075

PATIENT

DRUGS (3)
  1. JELMYTO [Suspect]
     Active Substance: MITOMYCIN
     Indication: Transitional cell cancer of the renal pelvis and ureter
     Dosage: 11 MILLILITER (CC), ONCE A WEEK (INSTILLATION)
     Dates: start: 20230802, end: 20230802
  2. JELMYTO [Suspect]
     Active Substance: MITOMYCIN
     Dosage: 11 MILLILITER (CC), ONCE A WEEK (INSTILLATION)
     Dates: start: 20230809, end: 20230809
  3. JELMYTO [Suspect]
     Active Substance: MITOMYCIN
     Dosage: 9 MILLILITER (CC), ONCE A WEEK (INSTILLATION)
     Dates: start: 20230816, end: 20230816

REACTIONS (9)
  - Dizziness [Unknown]
  - Feeling hot [Unknown]
  - Dizziness [Unknown]
  - Burning sensation [Recovered/Resolved]
  - Dizziness [Unknown]
  - Feeling hot [Unknown]
  - Nausea [Recovering/Resolving]
  - Nausea [Recovering/Resolving]
  - Nausea [Recovering/Resolving]

NARRATIVE: CASE EVENT DATE: 20230803
